FAERS Safety Report 14384960 (Version 1)
Quarter: 2018Q1

REPORT INFORMATION
  Report Type: Report from Study
  Country: NL (occurrence: NL)
  Receive Date: 20180115
  Receipt Date: 20180115
  Transmission Date: 20180509
  Serious: Yes (Other)
  Sender: FDA-Public Use
  Company Number: NL-MYLANLABS-2018M1001597

PATIENT

DRUGS (1)
  1. REMIFENTANIL [Suspect]
     Active Substance: REMIFENTANIL
     Indication: LABOUR PAIN
     Dosage: 28MICROG OF REMIFENTANIL (SOLUTION 40 MICROG/ML) BY A PATIENT-CONTROLLED DEVICE
     Route: 064

REACTIONS (2)
  - Foetal exposure during pregnancy [Recovered/Resolved]
  - Sinusoidal foetal heart rate pattern [Unknown]
